FAERS Safety Report 18805360 (Version 3)
Quarter: 2022Q1

REPORT INFORMATION
  Report Type: Report from Study
  Country: US (occurrence: US)
  Receive Date: 20210129
  Receipt Date: 20220308
  Transmission Date: 20220423
  Serious: No
  Sender: FDA-Public Use
  Company Number: US-ACADIA PHARMACEUTICALS INC.-ACA-2021-PIM-000011

PATIENT
  Age: 61 Year
  Sex: Male

DRUGS (2)
  1. NUPLAZID [Suspect]
     Active Substance: PIMAVANSERIN TARTRATE
     Indication: Parkinson^s disease psychosis
     Dosage: 34 MILLIGRAM, QD (EVERY EVENING)
     Route: 048
     Dates: start: 20200826
  2. METOPROLOL [Suspect]
     Active Substance: METOPROLOL
     Dosage: UNK

REACTIONS (3)
  - Dizziness [Unknown]
  - Throat tightness [Unknown]
  - Dyspnoea [Unknown]

NARRATIVE: CASE EVENT DATE: 20210408
